FAERS Safety Report 13716259 (Version 2)
Quarter: 2017Q3

REPORT INFORMATION
  Report Type: Spontaneous
  Country: US (occurrence: US)
  Receive Date: 20170705
  Receipt Date: 20170712
  Transmission Date: 20171127
  Serious: Yes (Other)
  Sender: FDA-Public Use
  Company Number: US-AMGEN-USASP2017097713

PATIENT
  Age: 69 Year
  Sex: Female
  Weight: 72.56 kg

DRUGS (3)
  1. PREMARIN [Concomitant]
     Active Substance: ESTROGENS, CONJUGATED
     Indication: HYSTERECTOMY
     Dosage: UNK
  2. REPATHA [Suspect]
     Active Substance: EVOLOCUMAB
     Indication: HYPERLIPIDAEMIA
  3. REPATHA [Suspect]
     Active Substance: EVOLOCUMAB
     Indication: BLOOD CHOLESTEROL INCREASED
     Dosage: 140 MG/ML, Q2WK
     Route: 058
     Dates: start: 20170214, end: 20170626

REACTIONS (15)
  - Rhinalgia [Not Recovered/Not Resolved]
  - Pyrexia [Unknown]
  - Throat tightness [Unknown]
  - Drug effect decreased [Unknown]
  - Pain [Unknown]
  - Back pain [Not Recovered/Not Resolved]
  - Arterial occlusive disease [Unknown]
  - Burning sensation mucosal [Unknown]
  - Pruritus [Unknown]
  - Pain in extremity [Unknown]
  - Flushing [Recovered/Resolved]
  - Rhinorrhoea [Unknown]
  - Eye pruritus [Unknown]
  - Headache [Unknown]
  - Swelling face [Recovered/Resolved]

NARRATIVE: CASE EVENT DATE: 2017
